FAERS Safety Report 8292433-0 (Version None)
Quarter: 2012Q2

REPORT INFORMATION
  Report Type: 
  Country: None (occurrence: None)
  Receive Date: 20120417
  Receipt Date: 20120410
  Transmission Date: 20120825
  Serious: Yes (Other)
  Sender: FDA-Public Use
  Company Number: GB-B.I. PHARMACEUTICALS,INC./RIDGEFIELD-2012-EU-01997GD

PATIENT
  Age: 66 Year
  Sex: Male

DRUGS (2)
  1. LEVODOPA [Suspect]
     Indication: PARKINSON'S DISEASE
  2. PRAMIPEXOLE DIHYDROCHLORIDE [Suspect]
     Indication: PARKINSON'S DISEASE

REACTIONS (3)
  - HYPERSEXUALITY [None]
  - DOPAMINE DYSREGULATION SYNDROME [None]
  - INTENTIONAL DRUG MISUSE [None]
